FAERS Safety Report 7707363-X (Version None)
Quarter: 2011Q3

REPORT INFORMATION
  Report Type: 
  Country: None (occurrence: None)
  Receive Date: 20110824
  Receipt Date: 20110822
  Transmission Date: 20111222
  Serious: Yes (Other)
  Sender: FDA-Public Use
  Company Number: US-PFIZER INC-2011189211

PATIENT
  Sex: Female
  Weight: 89.342 kg

DRUGS (7)
  1. DEPAKOTE [Concomitant]
     Indication: BIPOLAR DISORDER
     Dosage: 500 MG, 1X/DAY
  2. CHANTIX [Suspect]
     Dosage: 1 MG, 2X/DAY
     Route: 048
     Dates: start: 20110101, end: 20110811
  3. CHANTIX [Suspect]
     Indication: SMOKING CESSATION THERAPY
     Dosage: 0.5 MG, 1X/DAY
     Route: 048
     Dates: start: 20110601, end: 20110101
  4. KLONOPIN [Concomitant]
     Dosage: 1 MG, 4X/DAY
  5. CITALOPRAM [Concomitant]
     Indication: BIPOLAR I DISORDER
     Dosage: UNK, 1X/DAY
  6. SIMVASTATIN [Concomitant]
     Indication: BLOOD CHOLESTEROL INCREASED
     Dosage: 40 MG, UNK
  7. BUSPIRONE [Concomitant]
     Indication: ANXIETY
     Dosage: 30 MG, 1X/DAY

REACTIONS (3)
  - SUICIDAL IDEATION [None]
  - MAJOR DEPRESSION [None]
  - MENTAL IMPAIRMENT [None]
